FAERS Safety Report 21697643 (Version 2)
Quarter: 2023Q1

REPORT INFORMATION
  Report Type: Report from Study
  Country: US (occurrence: US)
  Receive Date: 20221208
  Receipt Date: 20230306
  Transmission Date: 20230417
  Serious: No
  Sender: FDA-Public Use
  Company Number: US-ABBVIE-4179202

PATIENT
  Age: 51 Year
  Sex: Female

DRUGS (2)
  1. HUMIRA [Suspect]
     Active Substance: ADALIMUMAB
     Indication: Uveitis
     Dosage: CITRATE FREE
     Route: 058
  2. HUMIRA [Suspect]
     Active Substance: ADALIMUMAB
     Route: 058
     Dates: start: 20220815

REACTIONS (13)
  - Headache [Recovered/Resolved]
  - Pyrexia [Unknown]
  - Vomiting [Unknown]
  - Nausea [Unknown]
  - Eye disorder [Not Recovered/Not Resolved]
  - Illness [Unknown]
  - Drug ineffective [Unknown]
  - Feeling abnormal [Unknown]
  - Vision blurred [Unknown]
  - Photosensitivity reaction [Unknown]
  - Ocular discomfort [Unknown]
  - Mental disorder [Unknown]
  - General physical health deterioration [Unknown]

NARRATIVE: CASE EVENT DATE: 20221001
